FAERS Safety Report 22626292 (Version 1)
Quarter: 2023Q2

REPORT INFORMATION
  Report Type: Spontaneous
  Country: CA (occurrence: None)
  Receive Date: 20230621
  Receipt Date: 20230621
  Transmission Date: 20230721
  Serious: Yes (Hospitalization)
  Sender: FDA-Public Use
  Company Number: CA-Eisai Medical Research-EC-2023-142621

PATIENT
  Age: 68 Year
  Sex: Male

DRUGS (1)
  1. LENVIMA [Suspect]
     Active Substance: LENVATINIB
     Indication: Hepatocellular carcinoma
     Dosage: FREQUENCY UNKNOWN
     Route: 048

REACTIONS (6)
  - Altered state of consciousness [Unknown]
  - Paracentesis [Unknown]
  - Spontaneous bacterial peritonitis [Unknown]
  - Ascites [Unknown]
  - Liver function test increased [Unknown]
  - Acute hepatic failure [Unknown]
